FAERS Safety Report 7780621-9 (Version None)
Quarter: 2011Q3

REPORT INFORMATION
  Report Type: 
  Country: None (occurrence: None)
  Receive Date: 20110927
  Receipt Date: 20101108
  Transmission Date: 20111222
  Serious: No
  Sender: FDA-Public Use
  Company Number: US-BRISTOL-MYERS SQUIBB COMPANY-15372881

PATIENT
  Age: 75 Year
  Sex: Male

DRUGS (3)
  1. PLAVIX [Suspect]
     Dates: start: 20100101
  2. AVAPRO [Suspect]
     Dosage: STRATED AS 75MG AND INCREASED TO 150MG ON03NOV2010
  3. TOPROL-XL [Suspect]

REACTIONS (1)
  - BLOOD PRESSURE INCREASED [None]
